FAERS Safety Report 17605568 (Version 1)
Quarter: 2020Q1

REPORT INFORMATION
  Report Type: Spontaneous
  Country: FR (occurrence: FR)
  Receive Date: 20200331
  Receipt Date: 20200331
  Transmission Date: 20200409
  Serious: Yes (Hospitalization)
  Sender: FDA-Public Use
  Company Number: FR-ROCHE-2572036

PATIENT
  Age: 69 Year
  Sex: Male
  Weight: 73 kg

DRUGS (21)
  1. CALCIDOSE VITAMINE D [Concomitant]
     Active Substance: CALCIUM\CHOLECALCIFEROL
  2. PIPERACILLINE [PIPERACILLIN] [Concomitant]
     Active Substance: PIPERACILLIN
  3. CORTANCYL [Suspect]
     Active Substance: PREDNISONE
     Indication: POLYCHONDRITIS
     Route: 048
  4. CHLORURE DE SODIUM [Concomitant]
     Active Substance: SODIUM CHLORIDE
  5. BUDESONIDE. [Concomitant]
     Active Substance: BUDESONIDE
  6. PRIMPERAN [Concomitant]
     Active Substance: METOCLOPRAMIDE HYDROCHLORIDE
  7. VESICARE [Concomitant]
     Active Substance: SOLIFENACIN SUCCINATE
  8. TAZOBACTAM [Concomitant]
     Active Substance: TAZOBACTAM
  9. RAMIPRIL. [Concomitant]
     Active Substance: RAMIPRIL
  10. NEFOPAM [Concomitant]
     Active Substance: NEFOPAM
  11. LANSOPRAZOLE. [Concomitant]
     Active Substance: LANSOPRAZOLE
  12. METFORMINE [METFORMIN] [Concomitant]
     Active Substance: METFORMIN HYDROCHLORIDE
  13. UROREC [Concomitant]
     Active Substance: SILODOSIN
  14. PANTOPRAZOLE [Concomitant]
     Active Substance: PANTOPRAZOLE
  15. DAFALGAN [Concomitant]
     Active Substance: ACETAMINOPHEN
  16. DIAMICRON [Concomitant]
     Active Substance: GLICLAZIDE
  17. PREVISCAN [FLUINDIONE] [Concomitant]
     Active Substance: FLUINDIONE
  18. CELLCEPT [Suspect]
     Active Substance: MYCOPHENOLATE MOFETIL\MYCOPHENOLATE MOFETIL HYDROCHLORIDE
     Indication: POLYCHONDRITIS
     Route: 048
     Dates: end: 201901
  19. SPECIAFOLDINE [Concomitant]
     Active Substance: FOLIC ACID
  20. SECTRAL [Concomitant]
     Active Substance: ACEBUTOLOL HYDROCHLORIDE
  21. CETIRIZINE [Concomitant]
     Active Substance: CETIRIZINE HYDROCHLORIDE

REACTIONS (4)
  - Acute kidney injury [Recovered/Resolved]
  - Respiratory distress [Recovered/Resolved]
  - Lung disorder [Recovered/Resolved]
  - Epstein-Barr virus infection [Recovered/Resolved]

NARRATIVE: CASE EVENT DATE: 20190105
